FAERS Safety Report 24316152 (Version 1)
Quarter: 2024Q3

REPORT INFORMATION
  Report Type: Spontaneous
  Country: AU (occurrence: AU)
  Receive Date: 20240913
  Receipt Date: 20240913
  Transmission Date: 20241016
  Serious: Yes (Hospitalization)
  Sender: RANBAXY
  Company Number: AU-SUN PHARMACEUTICAL INDUSTRIES LTD-2024R1-466126

PATIENT
  Age: 58 Year
  Sex: Male
  Weight: 86.2 kg

DRUGS (23)
  1. DOXORUBICIN [Suspect]
     Active Substance: DOXORUBICIN
     Indication: Diffuse large B-cell lymphoma
     Dosage: UNK (104 MILLIGRAM, INTERVAL-3 WEEK)
     Route: 042
     Dates: start: 20240619
  2. PREDNISONE [Suspect]
     Active Substance: PREDNISONE
     Indication: Diffuse large B-cell lymphoma
     Dosage: UNK (100 MILLIGRAM, 3 WEEKLY)
     Route: 048
     Dates: start: 20240618
  3. CYCLOPHOSPHAMIDE [Suspect]
     Active Substance: CYCLOPHOSPHAMIDE
     Indication: Diffuse large B-cell lymphoma
     Dosage: UNK (1560 MILLIGRAM, INTERVAL-3 WEEK)
     Route: 042
     Dates: start: 20240619
  4. POLATUZUMAB VEDOTIN [Suspect]
     Active Substance: POLATUZUMAB VEDOTIN
     Indication: Diffuse large B-cell lymphoma
     Dosage: UNK (150 MILLIGRAM, 3 WEEKLY)
     Route: 042
     Dates: start: 20240619
  5. RITUXIMAB [Suspect]
     Active Substance: RITUXIMAB
     Indication: Diffuse large B-cell lymphoma
     Dosage: UNK (780 MILLIGRAM, 3 WEEKLY)
     Route: 042
     Dates: start: 20240618
  6. BACTRIM DS [Concomitant]
     Active Substance: SULFAMETHOXAZOLE\TRIMETHOPRIM
     Indication: Product used for unknown indication
     Dosage: UNK (INTERVAL: 0 WEEK)
     Route: 048
     Dates: start: 20240619, end: 20240718
  7. ENOXAPARIN SODIUM [Concomitant]
     Active Substance: ENOXAPARIN SODIUM
     Indication: Product used for unknown indication
     Dosage: UNK (40 MILLIGRAM; INTERVAL: 1 DAY)
     Route: 058
     Dates: start: 20240627, end: 20240629
  8. ENSTILAR [Concomitant]
     Active Substance: BETAMETHASONE DIPROPIONATE\CALCIPOTRIENE HYDRATE
     Indication: Product used for unknown indication
     Dosage: UNK (INTERVAL: 1 AS NECESSARY)
     Route: 061
     Dates: start: 2020, end: 20240531
  9. MOVICOL [Concomitant]
     Active Substance: POLYETHYLENE GLYCOL 3350\POTASSIUM CHLORIDE\SODIUM BICARBONATE\SODIUM CHLORIDE
     Indication: Constipation
     Dosage: UNK (DAILY)
     Route: 048
     Dates: start: 20240626, end: 20240626
  10. PAXLOVID [Concomitant]
     Active Substance: NIRMATRELVIR\RITONAVIR
     Indication: Product used for unknown indication
     Dosage: UNK (INTERVAL: 1 DAY)
     Route: 048
     Dates: start: 20240626, end: 20240626
  11. PAXLOVID [Concomitant]
     Active Substance: NIRMATRELVIR\RITONAVIR
     Dosage: UNK  (INTERVAL: 1 DAY)
     Route: 048
     Dates: start: 20240627, end: 20240706
  12. ALLOPURINOL [Concomitant]
     Active Substance: ALLOPURINOL
     Indication: Product used for unknown indication
     Dosage: UNK
     Route: 065
  13. AMOXICILLIN [Concomitant]
     Active Substance: AMOXICILLIN
     Indication: Product used for unknown indication
     Dosage: UNK (INTERVAL: 1 DAY)
     Route: 048
     Dates: start: 20240625, end: 20240627
  14. AZITHROMYCIN [Concomitant]
     Active Substance: AZITHROMYCIN
     Indication: Product used for unknown indication
     Dosage: UNK (4.5 MILLIGRAM; INTERVAL: 1 DAY)
     Route: 042
     Dates: start: 20240625, end: 20240625
  15. AZITHROMYCIN [Concomitant]
     Active Substance: AZITHROMYCIN
     Dosage: UNK (4.5 MILLIGRAM; INTERVAL: 0 DAY)
     Route: 042
     Dates: start: 20240626, end: 20240628
  16. AZITHROMYCIN [Concomitant]
     Active Substance: AZITHROMYCIN
     Dosage: UNK (4.5 MILLIGRAM; INTERVAL: 1 DAY)
     Route: 042
     Dates: start: 20240629, end: 20240629
  17. HYDROCORTISONE [Concomitant]
     Active Substance: HYDROCORTISONE\HYDROCORTISONE ACETATE
     Indication: Infusion related reaction
     Dosage: UNK (100 MILLIGRAM; INTERVAL: 1 AS NECESSARY)
     Route: 042
     Dates: start: 20240618, end: 20240618
  18. LORATADINE [Concomitant]
     Active Substance: LORATADINE
     Indication: Infusion related reaction
     Dosage: UNK (10 MILLIGRAM; INTERVAL: 1 AS NECESSARY)
     Route: 048
     Dates: start: 20240618, end: 20240618
  19. MOLNUPIRAVIR [Concomitant]
     Active Substance: MOLNUPIRAVIR
     Indication: Product used for unknown indication
     Dosage: UNK (800 MILLIGRAM; INTERVAL: 1 DAY)
     Route: 048
     Dates: start: 20240625, end: 20240626
  20. PANTOPRAZOLE SODIUM [Concomitant]
     Active Substance: PANTOPRAZOLE SODIUM
     Indication: Product used for unknown indication
     Dosage: UNK (40 MILLIGRAM; INTERVAL: 1 DAY)
     Route: 048
     Dates: start: 20240526
  21. PREDNISOLONE [Concomitant]
     Active Substance: PREDNISOLONE
     Indication: Product used for unknown indication
     Dosage: UNK (100 MILLIGRAM; INTERVAL: 1 DAY)
     Route: 048
     Dates: start: 20240606, end: 20240617
  22. RASBURICASE [Concomitant]
     Active Substance: RASBURICASE
     Indication: Tumour lysis syndrome
     Dosage: UNK (3 MILLIGRAM; INTERVAL: 1 DAY)
     Route: 042
     Dates: start: 20240615, end: 20240616
  23. RASBURICASE [Concomitant]
     Active Substance: RASBURICASE
     Dosage: UNK (3 MILLIGRAM; INTERVAL: 1 DAY)
     Route: 042
     Dates: start: 20240618, end: 20240620

REACTIONS (1)
  - COVID-19 [Recovered/Resolved]
